FAERS Safety Report 25449711 (Version 3)
Quarter: 2025Q3

REPORT INFORMATION
  Report Type: Spontaneous
  Country: US (occurrence: US)
  Receive Date: 20250618
  Receipt Date: 20250718
  Transmission Date: 20251021
  Serious: Yes (Hospitalization, Other)
  Sender: BAXTER
  Company Number: US-BAXTER-2025BAX016793

PATIENT
  Age: 51 Year
  Sex: Male

DRUGS (25)
  1. CYCLOPHOSPHAMIDE [Suspect]
     Active Substance: CYCLOPHOSPHAMIDE
     Indication: Lymphodepletion
     Dosage: 60 MG/KG, QD, INFUSION
     Route: 042
     Dates: start: 20250513, end: 20250514
  2. CYCLOPHOSPHAMIDE [Suspect]
     Active Substance: CYCLOPHOSPHAMIDE
     Indication: B-cell lymphoma
  3. SODIUM CHLORIDE [Suspect]
     Active Substance: SODIUM CHLORIDE
     Route: 065
  4. LIDOCAINE [Suspect]
     Active Substance: LIDOCAINE
     Route: 065
  5. ONDANSETRON [Suspect]
     Active Substance: ONDANSETRON
     Route: 065
  6. FOSAPREPITANT [Suspect]
     Active Substance: FOSAPREPITANT
     Route: 065
  7. MESNA [Suspect]
     Active Substance: MESNA
     Route: 065
  8. FLUDARABINE [Suspect]
     Active Substance: FLUDARABINE PHOSPHATE
     Indication: Lymphodepletion
     Dosage: 25 MG/M2, QD
     Route: 042
     Dates: start: 20250515, end: 20250519
  9. FLUDARABINE [Suspect]
     Active Substance: FLUDARABINE PHOSPHATE
     Indication: B-cell lymphoma
  10. ZOVIRAX [Concomitant]
     Active Substance: ACYCLOVIR
     Route: 065
  11. ZYLOPRIM [Concomitant]
     Active Substance: ALLOPURINOL
     Route: 065
  12. DEXAMETHASONE [Concomitant]
     Active Substance: DEXAMETHASONE
     Route: 065
  13. KEPPRA [Concomitant]
     Active Substance: LEVETIRACETAM
     Route: 065
  14. OLANZAPINE [Concomitant]
     Active Substance: OLANZAPINE
     Route: 065
  15. PROCHLORPERAZINE MALEATE [Concomitant]
     Active Substance: PROCHLORPERAZINE MALEATE
     Route: 065
  16. SODIUM BICARBONATE [Concomitant]
     Active Substance: SODIUM BICARBONATE
     Route: 065
  17. PEPCID [Concomitant]
     Active Substance: FAMOTIDINE
     Route: 065
  18. ALTERNAGEL [Concomitant]
     Active Substance: ALUMINUM HYDROXIDE
     Route: 065
  19. LEVAQUIN [Concomitant]
     Active Substance: LEVOFLOXACIN
     Route: 065
  20. DIFLUCAN [Concomitant]
     Active Substance: FLUCONAZOLE
     Route: 065
  21. TYLENOL [Concomitant]
     Active Substance: ACETAMINOPHEN
     Route: 065
  22. BENADRYL [Concomitant]
     Active Substance: DIPHENHYDRAMINE HYDROCHLORIDE
     Route: 065
  23. XANAX [Concomitant]
     Active Substance: ALPRAZOLAM
     Route: 065
  24. MIRALAX [Concomitant]
     Active Substance: POLYETHYLENE GLYCOL 3350
     Route: 065
  25. PROTONIX [Concomitant]
     Active Substance: PANTOPRAZOLE SODIUM
     Route: 065

REACTIONS (4)
  - Staphylococcal bacteraemia [Recovered/Resolved]
  - Pyrexia [Not Recovered/Not Resolved]
  - Cytokine release syndrome [Not Recovered/Not Resolved]
  - White blood cell count decreased [Unknown]

NARRATIVE: CASE EVENT DATE: 20250523
